FAERS Safety Report 18617513 (Version 1)
Quarter: 2020Q4

REPORT INFORMATION
  Report Type: Spontaneous
  Country: US (occurrence: US)
  Receive Date: 20201214
  Receipt Date: 20201214
  Transmission Date: 20210114
  Serious: Yes (Hospitalization)
  Sender: FDA-Public Use
  Company Number: None

PATIENT
  Sex: Male

DRUGS (22)
  1. PROTONIX [Concomitant]
     Active Substance: PANTOPRAZOLE SODIUM
  2. TUMERIC [Concomitant]
     Active Substance: HERBALS\TURMERIC
  3. FISH OIL [Concomitant]
     Active Substance: FISH OIL
  4. FOLIC ACID. [Concomitant]
     Active Substance: FOLIC ACID
  5. PREDNISOLONE. [Concomitant]
     Active Substance: PREDNISOLONE
  6. PREDNISONE. [Concomitant]
     Active Substance: PREDNISONE
  7. VITAMIN D [Concomitant]
     Active Substance: VITAMIN D NOS
  8. MILLIPRED [Concomitant]
     Active Substance: PREDNISOLONE
  9. COZAAR [Concomitant]
     Active Substance: LOSARTAN POTASSIUM
  10. DILANTIN [Concomitant]
     Active Substance: PHENYTOIN
  11. OMEPRAZOLE. [Concomitant]
     Active Substance: OMEPRAZOLE
  12. VITAMIN B COMPLEX [Concomitant]
     Active Substance: CYANOCOBALAMIN\DEXPANTHENOL\NIACINAMIDE\PYRIDOXINE HYDROCHLORIDE\RIBOFLAVIN 5^-PHOSPHATE SODIUM\THIAMINE HYDROCHLORIDE\VITAMIN B COMPLEX
  13. LEVOTHRYOXINE [Concomitant]
     Active Substance: LEVOTHYROXINE
  14. GENOTROPIN [Suspect]
     Active Substance: SOMATROPIN
     Indication: HYPOPITUITARISM
     Route: 058
     Dates: start: 20131230
  15. ASPIRIN. [Concomitant]
     Active Substance: ASPIRIN
  16. CRESTOR [Concomitant]
     Active Substance: ROSUVASTATIN CALCIUM
  17. RAMPRIL [Concomitant]
     Active Substance: RAMIPRIL
  18. CARVEDILOL. [Concomitant]
     Active Substance: CARVEDILOL
  19. FLUDROCORT [Concomitant]
  20. ANDRODERM [Concomitant]
     Active Substance: TESTOSTERONE
  21. LIDOCAINE. [Concomitant]
     Active Substance: LIDOCAINE
  22. VIACTIV MULT CHW VITAMIN [Concomitant]

REACTIONS (2)
  - Cystitis [None]
  - Dizziness [None]
